FAERS Safety Report 7933052-2 (Version None)
Quarter: 2011Q4

REPORT INFORMATION
  Report Type: 
  Country: None (occurrence: None)
  Receive Date: 20111122
  Receipt Date: 20111109
  Transmission Date: 20120403
  Serious: Yes (Hospitalization)
  Sender: FDA-Public Use
  Company Number: US-ELI_LILLY_AND_COMPANY-US201007006804

PATIENT
  Sex: Female
  Weight: 82.993 kg

DRUGS (7)
  1. FORTEO [Suspect]
     Dosage: 20 UG, QD
  2. FORTEO [Suspect]
     Dosage: 20 UG, QD
     Dates: start: 20100209
  3. FORTEO [Suspect]
     Indication: OSTEOPOROSIS
     Dosage: 20 UG, QD
     Dates: start: 20091201, end: 20091201
  4. FORTEO [Suspect]
     Dosage: 20 UG, QD
     Dates: end: 20110724
  5. ALAVERT [Concomitant]
  6. LEVOXYL [Concomitant]
  7. CRESTOR [Concomitant]

REACTIONS (2)
  - DRUG DOSE OMISSION [None]
  - ATRIAL FIBRILLATION [None]
